FAERS Safety Report 8369549-3 (Version None)
Quarter: 2012Q2

REPORT INFORMATION
  Report Type: 
  Country: None (occurrence: None)
  Receive Date: 20120518
  Receipt Date: 20120514
  Transmission Date: 20120825
  Serious: Yes (Death)
  Sender: FDA-Public Use
  Company Number: US-CELGENEUS-163-21880-12051912

PATIENT
  Sex: Male

DRUGS (5)
  1. PLAVIX [Concomitant]
     Dosage: 75 MILLIGRAM
     Route: 065
  2. REVLIMID [Suspect]
     Dosage: 25 MILLIGRAM
     Route: 048
     Dates: start: 20110701, end: 20120101
  3. LOVAZA [Concomitant]
     Route: 065
  4. ASPIRIN [Concomitant]
     Dosage: 81 MILLIGRAM
     Route: 065
  5. PREDNISONE [Concomitant]
     Dosage: 10 MILLIGRAM
     Route: 065

REACTIONS (1)
  - DEATH [None]
